FAERS Safety Report 8824086 (Version 1)
Quarter: 2012Q4

REPORT INFORMATION
  Report Type: 
  Country: US (occurrence: US)
  Receive Date: 20121003
  Receipt Date: 20121003
  Transmission Date: 20130627
  Serious: Yes (Other)
  Sender: FDA-Public Use
  Company Number: US-009507513-1210USA000907

PATIENT
  Sex: Male

DRUGS (1)
  1. JANUVIA [Suspect]
     Dosage: 100 mg, qd
     Route: 048

REACTIONS (5)
  - Skin exfoliation [Unknown]
  - Skin discolouration [Unknown]
  - Haemorrhage [Unknown]
  - Blood glucose decreased [Unknown]
  - Scratch [Unknown]
